FAERS Safety Report 8713008 (Version 2)
Quarter: 2013Q4

REPORT INFORMATION
  Report Type: Spontaneous
  Country: US (occurrence: US)
  Receive Date: 20120808
  Receipt Date: 20131112
  Transmission Date: 20140711
  Serious: No
  Sender: FDA-Public Use
  Company Number: US-JNJFOC-20120715122

PATIENT
  Sex: Female
  Weight: 83.92 kg

DRUGS (2)
  1. DURAGESIC [Suspect]
     Indication: MENINGITIS
     Route: 062
     Dates: start: 1996, end: 2009
  2. DURAGESIC [Suspect]
     Indication: MENINGITIS
     Route: 062
     Dates: start: 2009

REACTIONS (9)
  - Drug ineffective [Not Recovered/Not Resolved]
  - Product quality issue [Unknown]
  - Pain [Not Recovered/Not Resolved]
  - Product quality issue [Unknown]
  - Product quality issue [Unknown]
  - Drug dose omission [Not Recovered/Not Resolved]
  - Nasopharyngitis [Not Recovered/Not Resolved]
  - Oropharyngeal pain [Not Recovered/Not Resolved]
  - Malaise [Recovered/Resolved]
